FAERS Safety Report 17103825 (Version 1)
Quarter: 2019Q4

REPORT INFORMATION
  Report Type: Spontaneous
  Country: ZA (occurrence: ZA)
  Receive Date: 20191203
  Receipt Date: 20191203
  Transmission Date: 20200122
  Serious: No
  Sender: FDA-Public Use
  Company Number: ZA-LUPIN PHARMACEUTICALS INC.-2019-02761

PATIENT
  Sex: Male

DRUGS (6)
  1. CYMGEN [Concomitant]
     Active Substance: DULOXETINE HYDROCHLORIDE
     Indication: DEPRESSION
     Dosage: 30 MILLIGRAM
     Route: 048
     Dates: start: 201903
  2. DISPRIN CARDIOCARE [Concomitant]
     Active Substance: ASPIRIN
     Indication: ANTICOAGULANT THERAPY
     Dosage: 100 MILLIGRAM
     Route: 048
     Dates: start: 201903
  3. ASPAVOR [Concomitant]
     Active Substance: ATORVASTATIN
     Indication: BLOOD CHOLESTEROL ABNORMAL
     Dosage: 10 MILLIGRAM
     Route: 048
     Dates: start: 201811
  4. ZARTAN TABLETS [Suspect]
     Active Substance: LOSARTAN POTASSIUM
     Indication: HYPERTENSION
     Dosage: 100 MILLIGRAM
     Route: 048
     Dates: start: 201811
  5. TREPILINE [AMITRIPTYLINE HYDROCHLORIDE] [Concomitant]
     Active Substance: AMITRIPTYLINE HYDROCHLORIDE
     Indication: DEPRESSION
     Dosage: 10 MILLIGRAM
     Route: 048
     Dates: start: 201811
  6. ANTABUSE [Concomitant]
     Active Substance: DISULFIRAM
     Indication: PRODUCT USED FOR UNKNOWN INDICATION
     Dosage: 400 MILLIGRAM
     Route: 048
     Dates: start: 201903

REACTIONS (1)
  - Muscle spasms [Unknown]
